FAERS Safety Report 9198685 (Version 1)
Quarter: 2013Q1

REPORT INFORMATION
  Report Type: Spontaneous
  Country: US (occurrence: US)
  Receive Date: 20130329
  Receipt Date: 20130329
  Transmission Date: 20140127
  Serious: Yes (Other)
  Sender: FDA-Public Use
  Company Number: US-PFIZER INC-2013099569

PATIENT
  Age: 45 Year
  Sex: Female

DRUGS (11)
  1. LYRICA [Suspect]
     Dosage: 150 MG, 2X/DAY
  2. BUTRANS [Concomitant]
     Dosage: UNK
  3. DRISDOL [Concomitant]
     Dosage: UNK
  4. HYDROCHLOROTHIAZIDE [Concomitant]
     Dosage: UNK
  5. LISINOPRIL [Concomitant]
     Dosage: UNK
  6. LORTAB [Concomitant]
     Dosage: UNK
  7. LOSARTAN [Concomitant]
     Dosage: UNK
  8. MESTINON [Concomitant]
     Dosage: UNK
  9. NORVASC [Concomitant]
     Dosage: UNK
  10. SYNTHROID [Concomitant]
     Dosage: UNK
  11. VIIBRYD [Concomitant]
     Dosage: UNK

REACTIONS (1)
  - Activities of daily living impaired [Unknown]
